FAERS Safety Report 5570370-X (Version None)
Quarter: 2007Q4

REPORT INFORMATION
  Report Type: 
  Country: None (occurrence: None)
  Receive Date: 20071219
  Receipt Date: 20071219
  Transmission Date: 20080405
  Serious: No
  Sender: FDA-Public Use
  Company Number: None

PATIENT
  Age: 58 Year
  Sex: Male
  Weight: 108.8633 kg

DRUGS (7)
  1. NYSTATIN [Suspect]
     Dosage: 500,000 UNITS PO
     Route: 048
  2. FLUPHENAZINE [Concomitant]
  3. BENAZEPRIL HYDROCHLORIDE [Concomitant]
  4. LACTULOSE [Concomitant]
  5. BENZTROPINE [Concomitant]
  6. QUETIAPINE [Concomitant]
  7. LEVOTHYROXINE SODIUM [Concomitant]

REACTIONS (3)
  - COUGH [None]
  - FLUSHING [None]
  - LACRIMATION INCREASED [None]
